FAERS Safety Report 19879291 (Version 1)
Quarter: 2021Q3

REPORT INFORMATION
  Report Type: Spontaneous
  Country: CN (occurrence: CN)
  Receive Date: 20210924
  Receipt Date: 20210924
  Transmission Date: 20211014
  Serious: Yes (Other)
  Sender: FDA-Public Use
  Company Number: CN-ROCHE-2918131

PATIENT
  Age: 18 Year
  Sex: Male
  Weight: 58 kg

DRUGS (1)
  1. RITUXIMAB. [Suspect]
     Active Substance: RITUXIMAB
     Indication: NEPHRITIS
     Route: 041
     Dates: start: 20210703, end: 20210703

REACTIONS (3)
  - Off label use [Unknown]
  - Hypersensitivity [Recovering/Resolving]
  - Intentional product use issue [Unknown]

NARRATIVE: CASE EVENT DATE: 20210703
